FAERS Safety Report 9607033 (Version 2)
Quarter: 2014Q1

REPORT INFORMATION
  Report Type: Report from Study
  Country: GB (occurrence: GB)
  Receive Date: 20131009
  Receipt Date: 20140106
  Transmission Date: 20141002
  Serious: Yes (Hospitalization)
  Sender: FDA-Public Use
  Company Number: GB-ROCHE-1283046

PATIENT
  Age: 61 Year
  Sex: Female
  Weight: 77 kg

DRUGS (1)
  1. TRASTUZUMAB EMTANSINE [Suspect]
     Indication: BREAST CANCER METASTATIC
     Dosage: LAST DOSE PRIOR TO SAE: 13/SEP/2013
     Route: 042
     Dates: start: 20130913

REACTIONS (1)
  - Lower respiratory tract infection [Recovered/Resolved]
